FAERS Safety Report 15896846 (Version 1)
Quarter: 2019Q1

REPORT INFORMATION
  Report Type: Report from Study
  Country: FR (occurrence: FR)
  Receive Date: 20190131
  Receipt Date: 20190131
  Transmission Date: 20190417
  Serious: Yes (Death, Other)
  Sender: FDA-Public Use
  Company Number: FR-ASTRAZENECA-2018SF09946

PATIENT
  Age: 72 Year
  Sex: Male

DRUGS (14)
  1. OSMOGEL [Concomitant]
     Indication: PROPHYLAXIS
     Dosage: 1 APPLICATION Q24H
     Route: 061
     Dates: start: 20180527
  2. IMIPENEM [Concomitant]
     Active Substance: IMIPENEM
     Indication: FEBRILE BONE MARROW APLASIA
     Route: 042
     Dates: start: 20180802, end: 20180820
  3. MEDI7247 [Suspect]
     Active Substance: INVESTIGATIONAL PRODUCT
     Indication: ACUTE MYELOID LEUKAEMIA
     Route: 042
     Dates: start: 20180711, end: 20180711
  4. MEDI7247 [Suspect]
     Active Substance: INVESTIGATIONAL PRODUCT
     Indication: ACUTE MYELOID LEUKAEMIA
     Route: 042
     Dates: start: 20180619, end: 20180619
  5. AMLODIPINE [Concomitant]
     Active Substance: AMLODIPINE BESYLATE
     Indication: HYPERTENSION
     Route: 048
  6. ALLOPURINOL. [Concomitant]
     Active Substance: ALLOPURINOL
     Indication: HYPERURICAEMIA
     Route: 048
     Dates: start: 20180621
  7. DUPHALAC [Concomitant]
     Active Substance: LACTULOSE
     Indication: CONSTIPATION
     Dosage: 2 PRN
     Route: 048
     Dates: start: 20180621
  8. TAZOCILLINE [Concomitant]
     Active Substance: PIPERACILLIN SODIUM\TAZOBACTAM SODIUM
     Indication: FEBRILE BONE MARROW APLASIA
     Route: 042
     Dates: start: 20180722, end: 20180820
  9. TIENAM [Concomitant]
     Active Substance: CILASTATIN SODIUM\IMIPENEM
     Indication: FEBRILE BONE MARROW APLASIA
     Route: 042
     Dates: start: 20180731, end: 20180820
  10. G-CSF [Concomitant]
     Active Substance: GRANULOCYTE COLONY-STIMULATING FACTOR NOS
     Indication: FEBRILE BONE MARROW APLASIA
     Route: 042
     Dates: start: 20180725
  11. VALSARTAN. [Concomitant]
     Active Substance: VALSARTAN
     Indication: HYPERTENSION
     Route: 048
  12. VORICONAZOLE. [Concomitant]
     Active Substance: VORICONAZOLE
     Indication: FUNGAL INFECTION
     Route: 048
     Dates: start: 20180730
  13. VANCOMYCIN [Concomitant]
     Active Substance: VANCOMYCIN
     Indication: FEBRILE BONE MARROW APLASIA
     Route: 042
     Dates: start: 20180727
  14. AMIKIN [Concomitant]
     Active Substance: AMIKACIN SULFATE
     Indication: FEBRILE BONE MARROW APLASIA
     Route: 042
     Dates: start: 20180727, end: 20180820

REACTIONS (2)
  - Sepsis [None]
  - Toxic epidermal necrolysis [Not Recovered/Not Resolved]

NARRATIVE: CASE EVENT DATE: 20180801
